FAERS Safety Report 18628293 (Version 1)
Quarter: 2020Q4

REPORT INFORMATION
  Report Type: Spontaneous
  Country: US (occurrence: US)
  Receive Date: 20201217
  Receipt Date: 20201217
  Transmission Date: 20210114
  Serious: No
  Sender: FDA-Public Use
  Company Number: US-ESPERIONTHERAPEUTICS-2020USA00024

PATIENT
  Age: 66 Year
  Sex: Male
  Weight: 86.17 kg

DRUGS (4)
  1. NEXLETOL [Suspect]
     Active Substance: BEMPEDOIC ACID
     Indication: LOW DENSITY LIPOPROTEIN INCREASED
     Dosage: 180 MILLIGRAM, QD
     Route: 048
     Dates: start: 20200624, end: 20200718
  2. VERAPAMIL [Concomitant]
     Active Substance: VERAPAMIL HYDROCHLORIDE
     Dosage: AS DIRECTED
     Route: 048
  3. ENALAPRIL [Concomitant]
     Active Substance: ENALAPRIL
     Dosage: AS DIRECTED
     Route: 048
  4. TRIAMTERENE AND HYDROCHLOROTHIAZIDE [Concomitant]
     Active Substance: HYDROCHLOROTHIAZIDE\TRIAMTERENE
     Dosage: AS DIRECTED
     Route: 048

REACTIONS (2)
  - Muscle spasms [Recovered/Resolved]
  - Pain in extremity [Recovered/Resolved]

NARRATIVE: CASE EVENT DATE: 20200718
